FAERS Safety Report 8824006 (Version 1)
Quarter: 2012Q4

REPORT INFORMATION
  Report Type: Report from Study
  Country: ES (occurrence: ES)
  Receive Date: 20121003
  Receipt Date: 20121003
  Transmission Date: 20130627
  Serious: Yes (Hospitalization)
  Sender: FDA-Public Use
  Company Number: ES-BAXTER-2012BAX018119

PATIENT
  Age: 44 Year
  Sex: Male
  Weight: 96 kg

DRUGS (18)
  1. GENOXAL [Suspect]
     Indication: CHRONIC LYMPHOCYTIC LEUKEMIA
     Route: 042
     Dates: start: 20111219
  2. GENOXAL [Suspect]
     Route: 042
     Dates: start: 20120313, end: 20120315
  3. RITUXIMAB [Suspect]
     Indication: CHRONIC LYMPHOCYTIC LEUKAEMIA
     Route: 042
     Dates: start: 20111219
  4. RITUXIMAB [Suspect]
     Route: 042
     Dates: start: 20120313, end: 20120315
  5. FLUDARABINE [Suspect]
     Indication: CHRONIC LYMPHOCYTIC LEUKEMIA
     Route: 042
     Dates: start: 20111219
  6. FLUDARABINE [Suspect]
     Route: 042
     Dates: start: 20120313, end: 20120315
  7. CODEINE [Concomitant]
     Indication: COUGH
     Route: 065
     Dates: start: 20120409, end: 20120416
  8. VANCOMYCIN [Concomitant]
     Indication: INFECTION
     Route: 065
     Dates: start: 20120419, end: 20120426
  9. CEFTAZIDIME [Concomitant]
     Indication: INFECTION
     Route: 065
     Dates: start: 20120416, end: 20120424
  10. OMEPRAZOLE [Concomitant]
     Indication: GASTRIC ULCER PROPHYLAXIS
     Route: 048
  11. ALLOPURINOL [Concomitant]
     Indication: HYPERURICAEMIA
     Route: 048
  12. ACICLOVIR [Concomitant]
     Indication: VIRAL INFECTION
     Route: 048
  13. PREDNISONE [Concomitant]
     Indication: DRUG USE FOR UNKNOWN INDICATION
     Route: 048
     Dates: start: 20120709
  14. DARBEPOETIN ALFA [Concomitant]
     Indication: ANEMIA
     Dosage: 1500 UNIT NOT REPORTED
     Route: 058
     Dates: start: 20120719
  15. DARBEPOETIN ALFA [Concomitant]
     Dosage: 300 UNIT NOT REPORTED
     Route: 058
     Dates: start: 20120719
  16. FILGRASTIM [Concomitant]
     Indication: NEUTROPENIA
     Dosage: 1 UNIT NOT REPORTED
     Route: 065
  17. SPIRONOLACTONE [Concomitant]
     Indication: DRUG USE FOR UNKNOWN INDICATION
     Route: 048
     Dates: start: 20120716
  18. ANTITUSSIVE NOS [Concomitant]
     Indication: DRUG USE FOR UNKNOWN INDICATION
     Route: 065

REACTIONS (3)
  - Respiratory tract infection [Recovered/Resolved]
  - Syncope [Recovered/Resolved]
  - Pneumonia [Recovered/Resolved]
